FAERS Safety Report 13632120 (Version 3)
Quarter: 2017Q3

REPORT INFORMATION
  Report Type: Spontaneous
  Country: NL (occurrence: NL)
  Receive Date: 20170608
  Receipt Date: 20170717
  Transmission Date: 20171127
  Serious: Yes (Life-Threatening, Hospitalization)
  Sender: FDA-Public Use
  Company Number: NL-SA-2017SA099491

PATIENT
  Age: 74 Year
  Sex: Male
  Weight: 80 kg

DRUGS (10)
  1. ATENOLOL. [Concomitant]
     Active Substance: ATENOLOL
     Route: 048
  2. DIVISUN [Concomitant]
     Route: 048
  3. ASCORBIC ACID. [Concomitant]
     Active Substance: ASCORBIC ACID
     Route: 048
  4. PANTOPRAZOL [Concomitant]
     Active Substance: PANTOPRAZOLE SODIUM
     Route: 048
  5. SALBUTAMOL [Concomitant]
     Active Substance: ALBUTEROL
     Route: 055
  6. ALVESCO [Concomitant]
     Active Substance: CICLESONIDE
     Route: 055
  7. DEVARON [Concomitant]
     Dosage: TIMES PER 1 DF
     Route: 065
  8. PREDNISOLON [Concomitant]
     Active Substance: PREDNISOLONE
     Route: 048
  9. ACETYLSALICYLZUUR [Concomitant]
     Active Substance: ASPIRIN
     Route: 048
  10. PLAVIX [Suspect]
     Active Substance: CLOPIDOGREL BISULFATE
     Indication: CORONARY ARTERIAL STENT INSERTION
     Route: 048
     Dates: start: 201607, end: 20170513

REACTIONS (6)
  - Thrombotic microangiopathy [Recovered/Resolved]
  - Headache [Recovered/Resolved]
  - Fatigue [Recovered/Resolved]
  - Thrombocytopenia [Recovered/Resolved]
  - Haematoma [Recovered/Resolved]
  - Haemorrhage [Recovered/Resolved]

NARRATIVE: CASE EVENT DATE: 20170513
